FAERS Safety Report 13842725 (Version 1)
Quarter: 2017Q3

REPORT INFORMATION
  Report Type: Spontaneous
  Country: IN (occurrence: IN)
  Receive Date: 20170808
  Receipt Date: 20170808
  Transmission Date: 20171127
  Serious: No
  Sender: FDA-Public Use
  Company Number: IN-LUPIN PHARMACEUTICALS INC.-2017-01512

PATIENT
  Age: 30 Year
  Sex: Male

DRUGS (3)
  1. L-CIN [Concomitant]
     Active Substance: LEVOFLOXACIN
     Indication: TUBERCULOSIS
     Dosage: UNK, QD
     Dates: start: 20170206
  2. LIVER AID [Concomitant]
     Indication: LIVER DISORDER
     Dosage: UNK,QD
     Dates: start: 20170314
  3. COMBUTOL TABS [Suspect]
     Active Substance: ETHAMBUTOL HYDROCHLORIDE
     Indication: TUBERCULOSIS
     Dosage: 1 DF, QD
     Route: 048
     Dates: start: 20170206

REACTIONS (1)
  - Dizziness [Not Recovered/Not Resolved]

NARRATIVE: CASE EVENT DATE: 20170312
